FAERS Safety Report 9710530 (Version 2)
Quarter: 2013Q4

REPORT INFORMATION
  Report Type: Spontaneous
  Country: US (occurrence: US)
  Receive Date: 20131126
  Receipt Date: 20131126
  Transmission Date: 20140711
  Serious: No
  Sender: FDA-Public Use
  Company Number: US-BRISTOL-MYERS SQUIBB COMPANY-18868562

PATIENT
  Sex: Female

DRUGS (3)
  1. BYETTA [Suspect]
  2. BYDUREON [Suspect]
  3. VICTOZA [Suspect]

REACTIONS (6)
  - Weight decreased [Unknown]
  - Weight increased [Unknown]
  - Blood glucose fluctuation [Unknown]
  - Dizziness [Unknown]
  - Somnolence [Unknown]
  - Drug ineffective [Unknown]
